FAERS Safety Report 4642261-X (Version None)
Quarter: 2005Q2

REPORT INFORMATION
  Report Type: 
  Country: None (occurrence: None)
  Receive Date: 20050420
  Receipt Date: 20050401
  Transmission Date: 20051028
  Serious: Yes (Hospitalization, Other)
  Sender: FDA-Public Use
  Company Number: US_0406103675

PATIENT
  Age: 49 Year
  Sex: Female
  Weight: 85 kg

DRUGS (29)
  1. ZYPREXA [Suspect]
     Indication: BIPOLAR I DISORDER
     Dosage: 45 MG AT BEDTIME
     Dates: start: 20011120, end: 20040507
  2. ABILIFY [Concomitant]
  3. WELLBUTRIN SR [Concomitant]
  4. PAXIL [Concomitant]
  5. ANTABUSE [Concomitant]
  6. SPIRONOLACTONE [Concomitant]
  7. LITHIUM CARBONATE [Concomitant]
  8. LISONOPRIL (LISINOPRIL) [Concomitant]
  9. ATORVASTATIN CALCIUM [Concomitant]
  10. METFORMIN HCL [Concomitant]
  11. RISPERDAL [Concomitant]
  12. VITAMIN B-12 [Concomitant]
  13. ZANTAC [Concomitant]
  14. BACTRINM DS [Concomitant]
  15. ERYTHROMYCIN [Concomitant]
  16. VISTARIL (HYDROXYAINE EMBONATE) [Concomitant]
  17. TETRACYCLINE [Concomitant]
  18. CLONIDINE [Concomitant]
  19. NICOTINE DERMAL PATCH (NICOTINE RESIN) [Concomitant]
  20. THIAMINE [Concomitant]
  21. MULTI-VITAMIN [Concomitant]
  22. MYLANTA [Concomitant]
  23. MILK OF MAGNESIA [Concomitant]
  24. CLEOCIN [Concomitant]
  25. ARTANE [Concomitant]
  26. DULCOLAX [Concomitant]
  27. DIPHENHYDRAMINE HCL [Concomitant]
  28. NEOMYCIN [Concomitant]
  29. LEVAQUIN [Concomitant]

REACTIONS (54)
  - ACNE [None]
  - ALANINE AMINOTRANSFERASE INCREASED [None]
  - AMMONIA INCREASED [None]
  - AMNESIA [None]
  - ANGER [None]
  - ANXIETY [None]
  - APATHY [None]
  - ASPARTATE AMINOTRANSFERASE INCREASED [None]
  - BACTERIAL INFECTION [None]
  - BLOOD ALBUMIN DECREASED [None]
  - BLOOD GLUCOSE INCREASED [None]
  - BLOOD THYROID STIMULATING HORMONE DECREASED [None]
  - CONTUSION [None]
  - CYSTITIS [None]
  - DEPRESSED MOOD [None]
  - DEPRESSION [None]
  - DIABETES MELLITUS NON-INSULIN-DEPENDENT [None]
  - DIFFICULTY IN WALKING [None]
  - DISTURBANCE IN ATTENTION [None]
  - DIVERTICULITIS [None]
  - DIZZINESS [None]
  - DRUG ABUSER [None]
  - EYE DISORDER [None]
  - FALL [None]
  - FATIGUE [None]
  - FEAR [None]
  - FLAT AFFECT [None]
  - FORMICATION [None]
  - GAMMA-GLUTAMYLTRANSFERASE INCREASED [None]
  - HALLUCINATION, AUDITORY [None]
  - HEADACHE [None]
  - HYPERCHOLESTEROLAEMIA [None]
  - HYPERPHAGIA [None]
  - HYPOTENSION [None]
  - KLEBSIELLA INFECTION [None]
  - LOSS OF CONSCIOUSNESS [None]
  - MUSCLE SPASMS [None]
  - MUSCLE TWITCHING [None]
  - NIGHTMARE [None]
  - PANIC DISORDER [None]
  - POLYSUBSTANCE ABUSE [None]
  - PRESCRIBED OVERDOSE [None]
  - SELF MUTILATION [None]
  - SEXUAL ASSAULT VICTIM [None]
  - SLEEP DISORDER [None]
  - SUICIDAL IDEATION [None]
  - SYNCOPE [None]
  - THINKING ABNORMAL [None]
  - TREATMENT NONCOMPLIANCE [None]
  - TREMOR [None]
  - URINARY TRACT INFECTION [None]
  - VITAMIN B12 DECREASED [None]
  - VULVOVAGINAL DISCOMFORT [None]
  - WEIGHT INCREASED [None]
